FAERS Safety Report 8205231-0 (Version None)
Quarter: 2012Q1

REPORT INFORMATION
  Report Type: 
  Country: None (occurrence: None)
  Receive Date: 20120313
  Receipt Date: 20120229
  Transmission Date: 20120608
  Serious: Yes (Hospitalization, Other)
  Sender: FDA-Public Use
  Company Number: CA-ROCHE-GNE289996

PATIENT
  Sex: Female
  Weight: 61.265 kg

DRUGS (9)
  1. LEVAQUIN [Concomitant]
     Indication: PRODUCT USED FOR UNKNOWN INDICATION
  2. OMALIZUMAB [Suspect]
     Indication: ASTHMA
     Dosage: 300 MG, 1/MONTH
     Route: 058
     Dates: start: 20050727
  3. OMALIZUMAB [Suspect]
     Dosage: UNK UNK, UNKNOWN
     Dates: start: 20101130
  4. SINGULAIR [Concomitant]
     Indication: PRODUCT USED FOR UNKNOWN INDICATION
  5. HYDROCHLOROTHIAZIDE [Concomitant]
     Indication: PRODUCT USED FOR UNKNOWN INDICATION
  6. FOSAMAX [Concomitant]
     Indication: PRODUCT USED FOR UNKNOWN INDICATION
  7. SYMBICORT [Concomitant]
     Indication: PRODUCT USED FOR UNKNOWN INDICATION
  8. AVELOX [Concomitant]
     Indication: PRODUCT USED FOR UNKNOWN INDICATION
  9. ANTIHYPERTENSIVE [Concomitant]
     Indication: PRODUCT USED FOR UNKNOWN INDICATION
     Dosage: UNK
     Dates: start: 20101219, end: 20101226

REACTIONS (10)
  - RHINORRHOEA [None]
  - HYPERSENSITIVITY [None]
  - TONGUE DISCOLOURATION [None]
  - LARYNGITIS [None]
  - ASTHMA [None]
  - LUNG INFECTION [None]
  - BLOOD PRESSURE INCREASED [None]
  - FACIAL BONES FRACTURE [None]
  - LOWER RESPIRATORY TRACT INFECTION [None]
  - VIRAL INFECTION [None]
